FAERS Safety Report 20138863 (Version 1)
Quarter: 2021Q4

REPORT INFORMATION
  Report Type: Spontaneous
  Country: FR (occurrence: None)
  Receive Date: 20211202
  Receipt Date: 20211202
  Transmission Date: 20220303
  Serious: Yes (Hospitalization)
  Sender: FDA-Public Use
  Company Number: 2021A836128

PATIENT
  Age: 53 Year
  Sex: Female
  Weight: 69 kg

DRUGS (1)
  1. XIGDUO XR [Suspect]
     Active Substance: DAPAGLIFLOZIN PROPANEDIOL\METFORMIN HYDROCHLORIDE
     Indication: Type 2 diabetes mellitus
     Dosage: 1 MORNING AND EVENING
     Route: 065
     Dates: start: 202107, end: 20211005

REACTIONS (1)
  - Necrotising fasciitis [Recovering/Resolving]

NARRATIVE: CASE EVENT DATE: 20211005
